FAERS Safety Report 14950419 (Version 1)
Quarter: 2018Q2

REPORT INFORMATION
  Report Type: Spontaneous
  Country: FR (occurrence: FR)
  Receive Date: 20180530
  Receipt Date: 20180530
  Transmission Date: 20180711
  Serious: Yes (Other)
  Sender: FDA-Public Use
  Company Number: FR-TEVA-2018-FR-899624

PATIENT
  Age: 49 Year
  Sex: Male
  Weight: 93 kg

DRUGS (7)
  1. FLUOXETINE [Suspect]
     Active Substance: FLUOXETINE HYDROCHLORIDE
     Indication: DEPRESSION
     Dosage: 20 MILLIGRAM DAILY;
     Route: 048
  2. LOXAPAC 25 MG, COMPRIM? PELLICUL? [Suspect]
     Active Substance: LOXAPINE SUCCINATE
     Indication: DEPRESSION
     Dosage: 1 DOSAGE FORMS DAILY;
     Route: 048
     Dates: start: 2006
  3. XANAX [Suspect]
     Active Substance: ALPRAZOLAM
     Indication: DEPRESSION
     Dosage: 1 DOSAGE FORMS DAILY;
     Route: 048
  4. PERMIXON 160 MG, G?LULE [Suspect]
     Active Substance: HERBALS\SAW PALMETTO
     Indication: BENIGN PROSTATIC HYPERPLASIA
     Dosage: 1 DOSAGE FORMS DAILY;
     Route: 048
  5. XARELTO [Suspect]
     Active Substance: RIVAROXABAN
     Indication: PULMONARY EMBOLISM
     Dosage: 1 DOSAGE FORMS DAILY;
     Route: 048
     Dates: start: 20151211
  6. INNOHEP [Concomitant]
     Active Substance: TINZAPARIN SODIUM
     Indication: THROMBOSIS PROPHYLAXIS
     Route: 058
     Dates: start: 2012
  7. LEVOTHYROX 25 MICROGRAMMES, COMPRIM? S?CABLE [Suspect]
     Active Substance: LEVOTHYROXINE SODIUM
     Indication: HYPOTHYROIDISM
     Dosage: 1 DOSAGE FORMS DAILY;
     Route: 048

REACTIONS (2)
  - Hepatocellular injury [Recovered/Resolved]
  - Cholestasis [Not Recovered/Not Resolved]

NARRATIVE: CASE EVENT DATE: 20150904
